FAERS Safety Report 9127256 (Version 1)
Quarter: 2013Q1

REPORT INFORMATION
  Report Type: Spontaneous
  Country: US (occurrence: US)
  Receive Date: 20130228
  Receipt Date: 20130228
  Transmission Date: 20140127
  Serious: No
  Sender: FDA-Public Use
  Company Number: US-MYLANLABS-2012S1022183

PATIENT
  Age: 61 Year
  Sex: Female

DRUGS (2)
  1. METFORMIN HYDROCHLORIDE [Suspect]
     Dosage: WITH MEALS
     Route: 048
     Dates: start: 2011
  2. BLOOD PRESSURE MEDICATION [Concomitant]

REACTIONS (2)
  - Oral discomfort [Recovering/Resolving]
  - Nausea [Recovering/Resolving]
